FAERS Safety Report 6964077-1 (Version None)
Quarter: 2010Q3

REPORT INFORMATION
  Report Type: 
  Country: None (occurrence: None)
  Receive Date: 20100831
  Receipt Date: 20100816
  Transmission Date: 20110219
  Serious: Yes (Life-Threatening)
  Sender: FDA-Public Use
  Company Number: TCI2010A03130

PATIENT
  Age: 60 Year
  Sex: Male

DRUGS (4)
  1. LANSOPRAZOLE [Suspect]
     Indication: DUODENAL ULCER
     Dosage: 15 MG (15 MG, 1-2), PER ORAL
     Route: 048
  2. NASPALUN (CEFOPERAZONE SODIUM, SULBACTAM SODIUM) [Suspect]
     Indication: INFLAMMATION
     Dosage: 2 DF (1 DF, 2 IN 1 D); INTRAVENOUS DRIP
     Route: 041
     Dates: start: 20100726, end: 20100801
  3. URSO 250 [Concomitant]
  4. HERBAL PREPARATION [Concomitant]

REACTIONS (5)
  - DEVICE DISLOCATION [None]
  - FEBRILE NEUTROPENIA [None]
  - GASTRIC ULCER [None]
  - WHITE BLOOD CELL COUNT DECREASED [None]
  - WOUND SECRETION [None]
